FAERS Safety Report 12922655 (Version 1)
Quarter: 2016Q4

REPORT INFORMATION
  Report Type: Spontaneous
  Country: US (occurrence: US)
  Receive Date: 20161108
  Receipt Date: 20161108
  Transmission Date: 20170207
  Serious: No
  Sender: FDA-Public Use
  Company Number: None

PATIENT
  Age: 20 Year
  Sex: Female
  Weight: 45.9 kg

DRUGS (3)
  1. DULOXETINE LUPIN PHARMACEUTICALS, INC. [Suspect]
     Active Substance: DULOXETINE
     Indication: DEPRESSION
     Dosage: ?          QUANTITY:1 CAPSULE(S);?
     Route: 048
  2. ADVIL [Concomitant]
     Active Substance: IBUPROFEN
  3. VITAMIN D [Concomitant]
     Active Substance: CHOLECALCIFEROL

REACTIONS (8)
  - Panic attack [None]
  - Activities of daily living impaired [None]
  - Fatigue [None]
  - Altered state of consciousness [None]
  - Contusion [None]
  - Condition aggravated [None]
  - Asthenia [None]
  - Increased tendency to bruise [None]

NARRATIVE: CASE EVENT DATE: 20161107
